FAERS Safety Report 11348600 (Version 2)
Quarter: 2015Q3

REPORT INFORMATION
  Report Type: Spontaneous
  Country: US (occurrence: US)
  Receive Date: 20150806
  Receipt Date: 20150817
  Transmission Date: 20151125
  Serious: No
  Sender: FDA-Public Use
  Company Number: US-PFIZER INC-2015258802

PATIENT
  Age: 61 Year
  Sex: Female

DRUGS (3)
  1. GLIPIZIDE. [Suspect]
     Active Substance: GLIPIZIDE
     Indication: DIABETES MELLITUS
     Dosage: 5MG(TABLET) ONE HALF TABLET IN THE MORNING AND ONE HALF TABLET IN THE EVENING
  2. METFORMIN HCL [Suspect]
     Active Substance: METFORMIN HYDROCHLORIDE
     Indication: DIABETES MELLITUS
     Dosage: 500MG(TABLET) TWO, 2X/DAY
  3. FARXIGA [Suspect]
     Active Substance: DAPAGLIFLOZIN PROPANEDIOL
     Indication: DIABETES MELLITUS
     Dosage: 10MG(TABLET) ONE, 1X/DAY

REACTIONS (3)
  - Drug effect incomplete [Unknown]
  - Oedema peripheral [Unknown]
  - Peripheral swelling [Unknown]
